FAERS Safety Report 4638457-3 (Version None)
Quarter: 2005Q2

REPORT INFORMATION
  Report Type: 
  Country: None (occurrence: None)
  Receive Date: 20050418
  Receipt Date: 20050406
  Transmission Date: 20051028
  Serious: Yes (Life-Threatening, Hospitalization)
  Sender: FDA-Public Use
  Company Number: 2005051101

PATIENT
  Age: 36 Year
  Sex: Female
  Weight: 60 kg

DRUGS (17)
  1. SPIRONOLACTONE [Suspect]
     Indication: CARDIAC FAILURE
     Dosage: 25 MG (QD), ORAL
     Route: 048
     Dates: start: 20010323, end: 20010412
  2. SPIRONOLACTONE [Suspect]
     Indication: CARDIAC FAILURE
     Dosage: 25 MG (QD), ORAL
     Route: 048
     Dates: start: 20041014, end: 20041119
  3. WARFARIN SODIUM [Suspect]
     Indication: THROMBOSIS PROPHYLAXIS
     Dosage: 3.5-4.5 MG (UNKNOWN), ORAL
     Route: 048
     Dates: start: 19971015
  4. MAGNESIUM OXIDE (MAGNESIUM OXIDE) [Concomitant]
  5. PIMOBENDAN (PIMOBENDAN) [Concomitant]
  6. MEXILETINE HYDROCHLORIDE [Concomitant]
  7. IMIDAPRIL HYDROCHLORIDE (IMIDAPRIL HYDROCHLORIDE) [Concomitant]
  8. FUROSEMIDE [Concomitant]
  9. TORSEMIDE [Concomitant]
  10. HYDROCHLOROTHIAZIDE [Concomitant]
  11. SENNA LEAF (SENNA LEAF) [Concomitant]
  12. DOBUTAMINE HCL [Concomitant]
  13. FERROUS CITRATE [Concomitant]
  14. POTASSIUM CHLORIDE [Concomitant]
  15. CARVEDILOL [Concomitant]
  16. VALSARTAN [Concomitant]
  17. BUSERELIN ACETATE (BUSERELIN ACETATE) [Concomitant]

REACTIONS (17)
  - BLOOD PRESSURE DECREASED [None]
  - BLOOD PRESSURE SYSTOLIC DECREASED [None]
  - BRAIN NATRIURETIC PEPTIDE INCREASED [None]
  - CARDIAC FAILURE [None]
  - CONDITION AGGRAVATED [None]
  - DIZZINESS EXERTIONAL [None]
  - DIZZINESS POSTURAL [None]
  - DRUG INEFFECTIVE [None]
  - EPIGASTRIC DISCOMFORT [None]
  - HYPOKALAEMIA [None]
  - IRON DEFICIENCY ANAEMIA [None]
  - MALAISE [None]
  - MENOPAUSE [None]
  - MENORRHAGIA [None]
  - METRORRHAGIA [None]
  - SHOCK HAEMORRHAGIC [None]
  - YAWNING [None]
